FAERS Safety Report 24206259 (Version 1)
Quarter: 2024Q3

REPORT INFORMATION
  Report Type: Report from Study
  Country: CA (occurrence: CA)
  Receive Date: 20240813
  Receipt Date: 20240813
  Transmission Date: 20241017
  Serious: Yes (Hospitalization, Other)
  Sender: REGENERON
  Company Number: CA-BAYER-2024A115600

PATIENT
  Sex: Male

DRUGS (2)
  1. EYLEA [Suspect]
     Active Substance: AFLIBERCEPT
     Indication: Retinal vein occlusion
     Dosage: UNK, 40 MG/ML
     Dates: start: 20240129
  2. UNSPECIFIED INGREDIENT [Concomitant]
     Active Substance: UNSPECIFIED INGREDIENT
     Indication: Sleep disorder

REACTIONS (6)
  - Visual impairment [Unknown]
  - Syncope [Unknown]
  - Fall [Unknown]
  - Mental disorder [Not Recovered/Not Resolved]
  - Emotional distress [Unknown]
  - Pain [Unknown]
